FAERS Safety Report 7255965-X (Version None)
Quarter: 2011Q1

REPORT INFORMATION
  Report Type: 
  Country: None (occurrence: None)
  Receive Date: 20110129
  Receipt Date: 20100709
  Transmission Date: 20110831
  Serious: No
  Sender: FDA-Public Use
  Company Number: US-ABBOTT-10P-163-0648450-00

PATIENT
  Sex: Male
  Weight: 83.082 kg

DRUGS (5)
  1. CHOLCHICINE [Concomitant]
     Indication: GOUT
  2. DIGOXIN [Concomitant]
     Indication: ATRIAL FIBRILLATION
  3. COUMADIN [Concomitant]
     Indication: ATRIAL FIBRILLATION
  4. ALLOPURINOL [Concomitant]
     Indication: GOUT
  5. HUMIRA [Suspect]
     Indication: RHEUMATOID ARTHRITIS
     Dates: start: 20100201, end: 20100301

REACTIONS (4)
  - PRURITUS [None]
  - SKIN WRINKLING [None]
  - INSOMNIA [None]
  - PSORIASIS [None]
